FAERS Safety Report 4424272-2 (Version None)
Quarter: 2004Q3

REPORT INFORMATION
  Report Type: 
  Country: None (occurrence: None)
  Receive Date: 20040809
  Receipt Date: 20040726
  Transmission Date: 20050211
  Serious: Yes (Other)
  Sender: FDA-Public Use
  Company Number: 2001058431SE

PATIENT
  Age: 60 Year
  Sex: Female
  Weight: 72 kg

DRUGS (7)
  1. EXEMESTANE VS. CODE BROKEN [Suspect]
     Indication: BREAST CANCER
     Dosage: 25 MG, QD; ORAL
     Route: 048
     Dates: start: 19991123
  2. VIOXX [Concomitant]
  3. LASIX [Concomitant]
  4. ATACAND [Concomitant]
  5. REBOXETINE MESYLATE [Concomitant]
  6. LAKTIPEX [Concomitant]
  7. LEVAXIN (LEVOTHYROXINE SODIUM) [Concomitant]

REACTIONS (2)
  - ENDOMETRIAL HYPERTROPHY [None]
  - VAGINAL HAEMORRHAGE [None]
